FAERS Safety Report 7571956-3 (Version None)
Quarter: 2011Q2

REPORT INFORMATION
  Report Type: 
  Country: None (occurrence: None)
  Receive Date: 20110624
  Receipt Date: 20110408
  Transmission Date: 20111010
  Serious: No
  Sender: FDA-Public Use
  Company Number: A0922087A

PATIENT
  Age: 52 Year
  Sex: Male

DRUGS (4)
  1. VERAMYST [Suspect]
     Indication: CHRONIC SINUSITIS
     Dosage: 2SPR PER DAY
     Route: 045
     Dates: start: 20110330
  2. VASERETIC [Concomitant]
  3. LIPITOR [Concomitant]
  4. NEXIUM [Concomitant]

REACTIONS (5)
  - PAIN [None]
  - INFLUENZA LIKE ILLNESS [None]
  - OROPHARYNGEAL PAIN [None]
  - NASAL CONGESTION [None]
  - HEADACHE [None]
